FAERS Safety Report 8785814 (Version 2)
Quarter: 2012Q4

REPORT INFORMATION
  Report Type: 
  Country: JP (occurrence: JP)
  Receive Date: 20120914
  Receipt Date: 20121025
  Transmission Date: 20130627
  Serious: Yes (Death, Life-Threatening)
  Sender: FDA-Public Use
  Company Number: PHHY2012JP079247

PATIENT
  Age: 64 Year
  Sex: Female

DRUGS (5)
  1. COMTAN [Suspect]
     Indication: PARKINSON^S DISEASE
     Dosage: 400mg daily (1 tablet 4 times daily)
     Route: 048
     Dates: end: 20120727
  2. MENESIT [Suspect]
     Indication: PARKINSON^S DISEASE
     Dosage: 600mg daily (1 tablet 6 times daily)
     Route: 048
     Dates: end: 20120730
  3. ZONISAMIDE [Suspect]
     Indication: PARKINSON^S DISEASE
     Dosage: 100 mg, 1 tablet 4 times daily
     Route: 048
     Dates: end: 20120730
  4. PRAMIPEXOLE DIHYDROCHLORIDE [Suspect]
     Indication: PARKINSON^S DISEASE
     Dosage: 3mg daily (2 tablets 3 times daily)
     Route: 048
  5. INVESTIGATIONAL PRODUCT [Concomitant]
     Dosage: 1500 mg, UNK
     Route: 048
     Dates: end: 20120730

REACTIONS (8)
  - Drug-induced liver injury [Fatal]
  - Alanine aminotransferase increased [Fatal]
  - Aspartate aminotransferase increased [Fatal]
  - Hepatitis fulminant [Fatal]
  - Disseminated intravascular coagulation [Unknown]
  - Condition aggravated [Unknown]
  - Neuroleptic malignant syndrome [Unknown]
  - Depressed level of consciousness [Unknown]
